FAERS Safety Report 8698912 (Version 7)
Quarter: 2014Q1

REPORT INFORMATION
  Report Type: Report from Study
  Country: US (occurrence: US)
  Receive Date: 20120802
  Receipt Date: 20140115
  Transmission Date: 20141002
  Serious: Yes (Hospitalization, Other)
  Sender: FDA-Public Use
  Company Number: US-ROCHE-1082764

PATIENT
  Age: 69 Year
  Sex: Female

DRUGS (12)
  1. VEMURAFENIB [Suspect]
     Indication: MALIGNANT MELANOMA
     Route: 048
     Dates: start: 20120503, end: 20120620
  2. VEMURAFENIB [Suspect]
     Route: 048
     Dates: start: 20120628, end: 20120813
  3. IPILIMUMAB [Suspect]
     Indication: MALIGNANT MELANOMA
     Route: 042
     Dates: start: 20120531, end: 20120621
  4. FISH OIL [Concomitant]
     Route: 065
     Dates: start: 20111010
  5. LECITHIN [Concomitant]
     Route: 065
     Dates: start: 20111007
  6. IBUPROFEN [Concomitant]
     Route: 065
     Dates: start: 20120510
  7. IBUPROFEN [Concomitant]
     Route: 065
  8. ZOFRAN [Concomitant]
     Route: 065
     Dates: start: 20120524
  9. OXYCODONE [Concomitant]
     Route: 065
     Dates: start: 20120524
  10. OMEPRAZOLE [Concomitant]
  11. BACTRIM DS [Concomitant]
  12. IMITREX [Concomitant]

REACTIONS (3)
  - Temporal arteritis [Recovered/Resolved]
  - Alanine aminotransferase increased [Unknown]
  - Diarrhoea [Unknown]
